FAERS Safety Report 6340603-0 (Version None)
Quarter: 2009Q3

REPORT INFORMATION
  Report Type: 
  Country: None (occurrence: None)
  Receive Date: 20090902
  Receipt Date: 20090902
  Transmission Date: 20100115
  Serious: Yes (Life-Threatening, Hospitalization)
  Sender: FDA-Public Use
  Company Number: None

PATIENT
  Age: 86 Year
  Sex: Female

DRUGS (9)
  1. FORTEO [Suspect]
     Indication: OSTEOPOROSIS
     Dosage: ONE SUBCUTANEOUS INJECTION (20 MCG) DAILY
     Route: 058
     Dates: start: 20080101, end: 20090701
  2. COUMADIN [Concomitant]
  3. TIMOLOL [Concomitant]
  4. SYNTHROID [Concomitant]
  5. EVOXAC [Concomitant]
  6. NYSTATIN [Concomitant]
  7. SPIRIVA [Concomitant]
  8. SYMBICORT [Concomitant]
  9. DILTIAZEM [Concomitant]

REACTIONS (5)
  - DRUG INEFFECTIVE [None]
  - HEART RATE INCREASED [None]
  - HEART RATE IRREGULAR [None]
  - HYPOTENSION [None]
  - NO THERAPEUTIC RESPONSE [None]
